FAERS Safety Report 8011150-5 (Version None)
Quarter: 2011Q4

REPORT INFORMATION
  Report Type: 
  Country: None (occurrence: None)
  Receive Date: 20111228
  Receipt Date: 20111222
  Transmission Date: 20120403
  Serious: Yes (Death, Disabling, Other)
  Sender: FDA-Public Use
  Company Number: PHHY2010JP61626

PATIENT
  Sex: Male
  Weight: 57 kg

DRUGS (5)
  1. SIMULECT [Suspect]
     Dosage: 20 MG, ONCE/SINGLE
     Route: 042
     Dates: start: 20100213, end: 20100213
  2. SIMULECT [Suspect]
     Indication: RENAL TRANSPLANT
     Dosage: 20 MG, ONCE2SDO
     Route: 042
     Dates: start: 20100209, end: 20100209
  3. MEDROL [Concomitant]
     Indication: RENAL TRANSPLANT
     Dosage: 12 MG, UNK
     Route: 048
     Dates: start: 20100209, end: 20100422
  4. PROGRAF [Concomitant]
     Indication: RENAL TRANSPLANT
     Dosage: 12 MG, UNK
     Route: 048
     Dates: start: 20100209, end: 20100422
  5. MYCOPHENOLATE MOFETIL (CELLCEPT) [Concomitant]
     Indication: RENAL TRANSPLANT
     Dosage: 1000 MG, UNK
     Route: 048
     Dates: start: 20100209, end: 20100422

REACTIONS (6)
  - PLATELET COUNT DECREASED [None]
  - PROTHROMBIN LEVEL DECREASED [None]
  - LUNG INFECTION [None]
  - HEPATIC FAILURE [None]
  - KIDNEY TRANSPLANT REJECTION [None]
  - RENAL GRAFT LOSS [None]
